FAERS Safety Report 6765443-X (Version None)
Quarter: 2010Q2

REPORT INFORMATION
  Report Type: 
  Country: None (occurrence: None)
  Receive Date: 20100609
  Receipt Date: 20100531
  Transmission Date: 20101027
  Serious: Yes (Hospitalization)
  Sender: FDA-Public Use
  Company Number: DSU-2010-02446

PATIENT
  Age: 68 Year
  Sex: Female
  Weight: 58.514 kg

DRUGS (11)
  1. EVOXAC [Suspect]
     Indication: SJOGREN'S SYNDROME
     Dosage: 90 MG (30 MG, TID) PER ORAL
     Route: 048
     Dates: start: 20020101, end: 20090722
  2. EVOXAC [Suspect]
     Indication: SJOGREN'S SYNDROME
     Dosage: 90 MG (30 MG, TID) PER ORAL
     Route: 048
     Dates: start: 20090728, end: 20091121
  3. SOTALOL [Concomitant]
  4. ATENOLOL [Concomitant]
  5. DIOVAN [Concomitant]
  6. PEPCID [Concomitant]
  7. PLAVIX [Concomitant]
  8. SALAGEN [Concomitant]
  9. NORVASC [Concomitant]
  10. ALLEGRA [Concomitant]
  11. SIMVASTATIN [Concomitant]

REACTIONS (2)
  - CORONARY ARTERIAL STENT INSERTION [None]
  - ECONOMIC PROBLEM [None]
